FAERS Safety Report 7965461-X (Version None)
Quarter: 2011Q4

REPORT INFORMATION
  Report Type: 
  Country: None (occurrence: None)
  Receive Date: 20111206
  Receipt Date: 20111128
  Transmission Date: 20120403
  Serious: Yes (Life-Threatening)
  Sender: FDA-Public Use
  Company Number: 1119709

PATIENT
  Age: 72 Year
  Sex: Female

DRUGS (4)
  1. PACLITAXEL [Suspect]
     Indication: OVARIAN CANCER
     Dosage: 200 MG MILLIGRAM(S),, INTRAVENOUS DRIP
     Route: 041
     Dates: start: 20111124, end: 20111124
  2. TRIMETON [Concomitant]
  3. GRANISETRON [Concomitant]
  4. DEXAMETHASONE [Concomitant]

REACTIONS (5)
  - HYPOVOLAEMIC SHOCK [None]
  - TRISMUS [None]
  - HYPOTENSION [None]
  - DRUG HYPERSENSITIVITY [None]
  - LOSS OF CONSCIOUSNESS [None]
